FAERS Safety Report 8460546-6 (Version None)
Quarter: 2012Q2

REPORT INFORMATION
  Report Type: 
  Country: None (occurrence: None)
  Receive Date: 20120622
  Receipt Date: 20120613
  Transmission Date: 20120825
  Serious: Yes (Hospitalization)
  Sender: FDA-Public Use
  Company Number: DE-ASTRAZENECA-2012SE40005

PATIENT
  Age: 85 Year
  Sex: Female

DRUGS (6)
  1. LEVOTHYROXINE SODIUM [Concomitant]
     Route: 048
  2. RAMIPRIL [Suspect]
     Route: 048
  3. CITALOPRAM HYDROBROMIDE [Interacting]
     Route: 048
     Dates: end: 20120308
  4. OMEPRAZOLE [Interacting]
     Route: 048
     Dates: end: 20120308
  5. SIMVASTATIN [Concomitant]
     Route: 048
  6. METOPROLOL TARTRATE [Interacting]
     Route: 048
     Dates: end: 20120308

REACTIONS (2)
  - DRUG INTERACTION [None]
  - HYPONATRAEMIA [None]
